FAERS Safety Report 8680167 (Version 2)
Quarter: 2012Q4

REPORT INFORMATION
  Report Type: 
  Country: US (occurrence: US)
  Receive Date: 20120724
  Receipt Date: 20121023
  Transmission Date: 20130627
  Serious: Yes (Death, Other)
  Sender: FDA-Public Use
  Company Number: US-ROCHE-1090107

PATIENT
  Age: 65 Year
  Sex: Female
  Weight: 81.72 kg

DRUGS (10)
  1. ZELBORAF [Suspect]
     Indication: METASTATIC MALIGNANT MELANOMA
     Route: 048
  2. PLAQUENIL [Concomitant]
     Route: 048
  3. NADOLOL [Concomitant]
     Route: 048
  4. LEVOTHYROXINE [Concomitant]
     Route: 048
  5. EFFEXOR XR [Concomitant]
     Route: 048
  6. VITAMIN D [Concomitant]
     Route: 048
  7. VITAMIN B12 [Concomitant]
     Route: 048
  8. ALEVE [Concomitant]
     Route: 065
  9. VICODIN [Concomitant]
     Dosage: 5/500 mg
     Route: 048
  10. ZOMETA [Concomitant]
     Route: 065

REACTIONS (2)
  - Haemorrhage intracranial [Fatal]
  - Keratoacanthoma [Unknown]
